FAERS Safety Report 8988085 (Version 1)
Quarter: 2012Q4

REPORT INFORMATION
  Report Type: Report from Study
  Country: ES (occurrence: ES)
  Receive Date: 20121227
  Receipt Date: 20121227
  Transmission Date: 20130627
  Serious: Yes (Death, Hospitalization)
  Sender: FDA-Public Use
  Company Number: ES-CELGENEUS-144-21880-12011461

PATIENT
  Age: 37 Year
  Sex: Male

DRUGS (2)
  1. REVLIMID [Suspect]
     Indication: HODGKIN^S LYMPHOMA
     Dosage: 25 Milligram
     Route: 048
     Dates: start: 20110727, end: 20120117
  2. CYCLOPHOSPHAMIDE [Suspect]
     Indication: HODGKIN^S LYMPHOMA
     Route: 065

REACTIONS (4)
  - Acute respiratory failure [Fatal]
  - Septic shock [Fatal]
  - Pneumonia [Not Recovered/Not Resolved]
  - Hodgkin^s disease [Unknown]
